FAERS Safety Report 11284764 (Version 1)
Quarter: 2015Q3

REPORT INFORMATION
  Report Type: Spontaneous
  Country: US (occurrence: US)
  Receive Date: 20150720
  Receipt Date: 20150720
  Transmission Date: 20151125
  Serious: Yes (Hospitalization, Other)
  Sender: FDA-Public Use
  Company Number: US-B.I. PHARMACEUTICALS,INC./RIDGEFIELD-2015-BI-37994BP

PATIENT
  Age: 63 Year
  Sex: Male
  Weight: 107 kg

DRUGS (2)
  1. PRADAXA [Suspect]
     Active Substance: DABIGATRAN ETEXILATE MESYLATE
     Indication: ATRIAL FIBRILLATION
     Dosage: 300 MG
     Route: 048
     Dates: start: 2012
  2. ALLOPURINOL. [Concomitant]
     Active Substance: ALLOPURINOL
     Indication: GOUTY ARTHRITIS
     Dosage: 100 MG
     Route: 048

REACTIONS (8)
  - Blister [Unknown]
  - Foot deformity [Unknown]
  - Fall [Recovered/Resolved]
  - Contusion [Recovered/Resolved]
  - Oedema [Recovered/Resolved]
  - Cardiac arrest [Recovered/Resolved]
  - Neuropathy peripheral [Unknown]
  - Dizziness [Recovered/Resolved]

NARRATIVE: CASE EVENT DATE: 201304
